FAERS Safety Report 4479204-8 (Version None)
Quarter: 2004Q4

REPORT INFORMATION
  Report Type: 
  Country: None (occurrence: None)
  Receive Date: 20041019
  Receipt Date: 20041019
  Transmission Date: 20050328
  Serious: Yes (Hospitalization)
  Sender: FDA-Public Use
  Company Number: None

PATIENT
  Sex: Male
  Weight: 113.3993 kg

DRUGS (2)
  1. WARFARIN 5 MG [Suspect]
     Indication: KNEE ARTHROPLASTY
     Dosage: 5 MG
     Dates: start: 20031226, end: 20040103
  2. ENOXAPARIN 40 MG [Suspect]
     Dosage: 40 MG

REACTIONS (2)
  - HAEMOGLOBIN DECREASED [None]
  - INTERNATIONAL NORMALISED RATIO INCREASED [None]
